FAERS Safety Report 4762925-7 (Version None)
Quarter: 2005Q3

REPORT INFORMATION
  Report Type: 
  Country: None (occurrence: None)
  Receive Date: 20050907
  Receipt Date: 20050822
  Transmission Date: 20060218
  Serious: Yes (Other)
  Sender: FDA-Public Use
  Company Number: PHEH2005US09320

PATIENT
  Age: 67 Year
  Sex: Female

DRUGS (1)
  1. AREDIA [Suspect]
     Dosage: UNK, QMO
     Dates: start: 19980101, end: 20050301

REACTIONS (15)
  - ASEPTIC NECROSIS BONE [None]
  - BONE INFECTION [None]
  - ENDODONTIC PROCEDURE [None]
  - ERYTHEMA [None]
  - IMPAIRED HEALING [None]
  - INFLAMMATION [None]
  - ORAL PAIN [None]
  - OSTEOMYELITIS [None]
  - OSTEONECROSIS [None]
  - PARAESTHESIA [None]
  - PRIMARY SEQUESTRUM [None]
  - SOFT TISSUE INFECTION [None]
  - SWELLING [None]
  - THROMBOSIS [None]
  - TOOTH EXTRACTION [None]
